FAERS Safety Report 24449579 (Version 1)
Quarter: 2024Q4

REPORT INFORMATION
  Report Type: Spontaneous
  Country: JP (occurrence: JP)
  Receive Date: 20241017
  Receipt Date: 20241017
  Transmission Date: 20250114
  Serious: Yes (Life-Threatening, Hospitalization, Other)
  Sender: ORGANON
  Company Number: JP-MLMSERVICE-20241007-PI220292-00080-1

PATIENT
  Age: 51 Year
  Sex: Male

DRUGS (4)
  1. CARBIDOPA\LEVODOPA [Suspect]
     Active Substance: CARBIDOPA\LEVODOPA
     Indication: Parkinson^s disease
     Dosage: LEVODOPA/CARBIDOPA (150/15 MG, 5 TIMES A DAY) AND A DOSE INCREASE WAS NEEDED
     Route: 048
  2. ENTACAPONE [Concomitant]
     Active Substance: ENTACAPONE
     Indication: Parkinson^s disease
     Dosage: 100 MILLIGRAM, FOR 12 HOURS
  3. SELEGILINE [Concomitant]
     Active Substance: SELEGILINE
     Indication: Parkinson^s disease
     Dosage: 2.5 MILLIGRAM, FOR 12 HOURS
  4. ROPINIROLE [Concomitant]
     Active Substance: ROPINIROLE
     Indication: Parkinson^s disease
     Dosage: 16 MILLIGRAM

REACTIONS (3)
  - Dyskinesia [Recovering/Resolving]
  - Chorea [Recovering/Resolving]
  - Carotid artery dissection [Recovered/Resolved]
